FAERS Safety Report 7341404-7 (Version None)
Quarter: 2011Q1

REPORT INFORMATION
  Report Type: 
  Country: None (occurrence: None)
  Receive Date: 20110309
  Receipt Date: 20110228
  Transmission Date: 20110831
  Serious: Yes (Hospitalization, Other)
  Sender: FDA-Public Use
  Company Number: US-MERCK-0810USA03446

PATIENT
  Age: 57 Year
  Sex: Female

DRUGS (4)
  1. FOSAMAX [Suspect]
     Route: 048
     Dates: start: 20051228, end: 20061229
  2. FOSAMAX [Suspect]
     Route: 048
     Dates: start: 20051110, end: 20060105
  3. FOSAMAX [Suspect]
     Indication: OSTEOPENIA
     Route: 048
     Dates: start: 20060228, end: 20080101
  4. ATENOLOL [Concomitant]
     Route: 065
     Dates: start: 20000101

REACTIONS (26)
  - PARAESTHESIA ORAL [None]
  - HEADACHE [None]
  - CERVICAL MYELOPATHY [None]
  - MIGRAINE [None]
  - TENDERNESS [None]
  - BRUXISM [None]
  - TUBERCULIN TEST POSITIVE [None]
  - BLOOD CHOLESTEROL INCREASED [None]
  - ENCEPHALITIS [None]
  - CELLULITIS [None]
  - TOOTH INFECTION [None]
  - PAIN IN JAW [None]
  - OSTEOPENIA [None]
  - ORAL INFECTION [None]
  - INTERVERTEBRAL DISC PROTRUSION [None]
  - IMPAIRED HEALING [None]
  - BUNION [None]
  - OSTEOMYELITIS [None]
  - FISTULA DISCHARGE [None]
  - OSTEONECROSIS OF JAW [None]
  - HYPERTENSION [None]
  - OROPHARYNGEAL BLISTERING [None]
  - THYROID NEOPLASM [None]
  - FALL [None]
  - JAW DISORDER [None]
  - PTERYGIUM [None]
